FAERS Safety Report 6120161-6 (Version None)
Quarter: 2009Q1

REPORT INFORMATION
  Report Type: 
  Country: None (occurrence: None)
  Receive Date: 20090316
  Receipt Date: 20090130
  Transmission Date: 20090719
  Serious: No
  Sender: FDA-Public Use
  Company Number: US-ABBOTT-09P-163-0501409-00

PATIENT
  Sex: Male
  Weight: 77.634 kg

DRUGS (4)
  1. TRILIPIX [Suspect]
     Indication: BLOOD TRIGLYCERIDES INCREASED
     Dates: start: 20090128, end: 20090129
  2. KLOR-CON [Concomitant]
     Indication: DRUG USE FOR UNKNOWN INDICATION
  3. GLYPERIDE [Concomitant]
     Indication: DIABETES MELLITUS
  4. LISINOPRIL [Concomitant]
     Indication: HYPERTENSION

REACTIONS (3)
  - CHEST PAIN [None]
  - MUSCLE SPASMS [None]
  - RASH [None]
